FAERS Safety Report 7103387-4 (Version None)
Quarter: 2010Q4

REPORT INFORMATION
  Report Type: 
  Country: None (occurrence: None)
  Receive Date: 20101115
  Receipt Date: 20101108
  Transmission Date: 20110411
  Serious: Yes (Other)
  Sender: FDA-Public Use
  Company Number: CHPA2010US17501

PATIENT
  Age: 73 Year
  Sex: Female
  Weight: 58.957 kg

DRUGS (1)
  1. VOLTAREN [Suspect]
     Indication: MUSCULOSKELETAL PAIN
     Dosage: LITTLE BIT, ONE TIME
     Route: 061
     Dates: start: 20101020, end: 20101020

REACTIONS (6)
  - DRUG ADMINISTERED AT INAPPROPRIATE SITE [None]
  - HYPERSENSITIVITY [None]
  - OFF LABEL USE [None]
  - PRURITUS [None]
  - RASH GENERALISED [None]
  - WRONG TECHNIQUE IN DRUG USAGE PROCESS [None]
